FAERS Safety Report 21251900 (Version 1)
Quarter: 2022Q3

REPORT INFORMATION
  Report Type: Report from Study
  Country: TH (occurrence: TH)
  Receive Date: 20220825
  Receipt Date: 20220825
  Transmission Date: 20221027
  Serious: Yes (Life-Threatening, Hospitalization, Other)
  Sender: FDA-Public Use
  Company Number: TH-ALS-000780

PATIENT
  Age: 62 Year
  Sex: Female

DRUGS (8)
  1. METFORMIN [Suspect]
     Active Substance: METFORMIN HYDROCHLORIDE
     Indication: Diabetes mellitus
     Dosage: 2000 MG/DAY
     Route: 065
     Dates: start: 201905
  2. RIBOCICLIB [Interacting]
     Active Substance: RIBOCICLIB
     Indication: Hormone receptor positive HER2 negative breast cancer
     Dosage: 600 MG/DAY
     Route: 065
     Dates: start: 201909
  3. FULVESTRANT [Suspect]
     Active Substance: FULVESTRANT
     Indication: Hormone receptor positive HER2 negative breast cancer
     Route: 065
     Dates: start: 201905
  4. LOSARTAN [Suspect]
     Active Substance: LOSARTAN
     Indication: Product used for unknown indication
     Dosage: 100 MG/DAY
     Route: 065
     Dates: start: 201905
  5. AMLODIPINE [Suspect]
     Active Substance: AMLODIPINE BESYLATE
     Indication: Product used for unknown indication
     Dosage: 10 MG/DAY
     Route: 065
     Dates: start: 201905
  6. SIMVASTATIN [Suspect]
     Active Substance: SIMVASTATIN
     Indication: Product used for unknown indication
     Dosage: 10 MG/DAY
     Route: 065
     Dates: start: 201905
  7. GLIPIZIDE [Concomitant]
     Active Substance: GLIPIZIDE
     Indication: Product used for unknown indication
     Dosage: 5 MG/DAY
     Route: 065
     Dates: start: 201905
  8. FULVESTRANT [Suspect]
     Active Substance: FULVESTRANT
     Indication: Triple negative breast cancer
     Route: 065
     Dates: start: 202012

REACTIONS (17)
  - Lactic acidosis [Unknown]
  - Palpitations [Unknown]
  - Blood creatinine increased [Recovering/Resolving]
  - Acute respiratory failure [Unknown]
  - Gastrointestinal toxicity [Unknown]
  - Metabolic acidosis [Unknown]
  - Leukocytosis [Unknown]
  - Arrhythmia [Unknown]
  - Drug interaction [Unknown]
  - Renal impairment [Not Recovered/Not Resolved]
  - Disease progression [Unknown]
  - Metastases to lymph nodes [Unknown]
  - Metastases to lung [Unknown]
  - Hepatic mass [Unknown]
  - Drug level increased [Unknown]
  - Renal replacement therapy [Unknown]
  - Blood lactic acid increased [Unknown]
